FAERS Safety Report 4837247-6 (Version None)
Quarter: 2005Q4

REPORT INFORMATION
  Report Type: 
  Country: None (occurrence: None)
  Receive Date: 20051122
  Receipt Date: 20051108
  Transmission Date: 20060501
  Serious: Yes (Hospitalization, Other)
  Sender: FDA-Public Use
  Company Number: 200514492BCC

PATIENT
  Age: 74 Year
  Sex: Male
  Weight: 102.0593 kg

DRUGS (4)
  1. ACETYLSALICYLIC ACID SRT [Suspect]
     Indication: CEREBROVASCULAR ACCIDENT
     Dosage: 81 MG, IRR, ORAL
     Route: 048
     Dates: start: 20020101
  2. PLAVIX [Concomitant]
  3. PAXIL [Concomitant]
  4. SLEEP AID [Concomitant]

REACTIONS (7)
  - ABASIA [None]
  - ASTHENIA [None]
  - BLINDNESS UNILATERAL [None]
  - CAROTID ARTERY ATHEROMA [None]
  - RETINAL ARTERY EMBOLISM [None]
  - SEPSIS [None]
  - URINARY TRACT INFECTION [None]
